FAERS Safety Report 4411636-6 (Version None)
Quarter: 2004Q3

REPORT INFORMATION
  Report Type: 
  Country: None (occurrence: None)
  Receive Date: 20040728
  Receipt Date: 20040728
  Transmission Date: 20050211
  Serious: Yes (Hospitalization)
  Sender: FDA-Public Use
  Company Number: None

PATIENT
  Age: 58 Year
  Sex: Male
  Weight: 114.1 kg

DRUGS (9)
  1. INSULIN [Suspect]
     Indication: DIABETES MELLITUS
     Dosage: SUBCUTAN
     Route: 058
  2. HYDRALAZINE HCL [Concomitant]
  3. LOVASTATIN [Concomitant]
  4. HUMULIN N [Concomitant]
  5. FELODIPINE [Concomitant]
  6. FUROSEMIDE [Concomitant]
  7. LEVOCABASTINE HCL [Concomitant]
  8. GLUCOSE [Concomitant]
  9. ALBUTEROL [Concomitant]

REACTIONS (1)
  - HYPOGLYCAEMIA [None]
